FAERS Safety Report 9886909 (Version 1)
Quarter: 2014Q1

REPORT INFORMATION
  Report Type: Report from Study
  Country: CA (occurrence: CA)
  Receive Date: 20140210
  Receipt Date: 20140210
  Transmission Date: 20141002
  Serious: Yes (Other)
  Sender: FDA-Public Use
  Company Number: CA-ROCHE-1344265

PATIENT
  Age: 76 Year
  Sex: Female
  Weight: 82.1 kg

DRUGS (14)
  1. ACTEMRA [Suspect]
     Indication: RHEUMATOID ARTHRITIS
     Route: 042
     Dates: start: 20140122
  2. METHOTREXATE [Concomitant]
  3. FOLIC ACID [Concomitant]
  4. PLAQUENIL [Concomitant]
  5. AMLODIPINE [Concomitant]
  6. ENALAPRIL [Concomitant]
     Indication: BLOOD PRESSURE
  7. LIPITOR [Concomitant]
  8. HYDROCHLOROTHIAZIDE [Concomitant]
  9. MOBICOX [Concomitant]
  10. ACTONEL [Concomitant]
  11. VITAMIN C [Concomitant]
  12. MORPHINE [Concomitant]
  13. GABAPENTIN [Concomitant]
  14. PREDNISONE [Concomitant]

REACTIONS (1)
  - Thrombosis [Unknown]
